FAERS Safety Report 17586359 (Version 3)
Quarter: 2020Q2

REPORT INFORMATION
  Report Type: Spontaneous
  Country: US (occurrence: US)
  Receive Date: 20200326
  Receipt Date: 20200416
  Transmission Date: 20200713
  Serious: Yes (Other)
  Sender: FDA-Public Use
  Company Number: US-SHIRE-US202011371

PATIENT
  Sex: Female

DRUGS (1)
  1. GATTEX [Suspect]
     Active Substance: TEDUGLUTIDE\WATER
     Indication: PRODUCT USED FOR UNKNOWN INDICATION
     Dosage: 0.1200 (UNIT UNKNOWN), 1X/DAY:QD
     Route: 058
     Dates: start: 20191230

REACTIONS (4)
  - Heart rate increased [Unknown]
  - Abdominal pain [Unknown]
  - Stoma site haemorrhage [Unknown]
  - Diarrhoea [Not Recovered/Not Resolved]
